FAERS Safety Report 21478582 (Version 1)
Quarter: 2022Q4

REPORT INFORMATION
  Report Type: Spontaneous
  Country: US (occurrence: US)
  Receive Date: 20221019
  Receipt Date: 20221019
  Transmission Date: 20230113
  Serious: No
  Sender: FDA-Public Use
  Company Number: US-CELLTRION INC.-2022US000408

PATIENT

DRUGS (4)
  1. INFLIXIMAB [Suspect]
     Active Substance: INFLIXIMAB
     Indication: Kawasaki^s disease
     Dosage: A SINGLE DOSE OF 10 MG/KG PRIOR TO ANAKINRA
  2. ANAKINRA [Suspect]
     Active Substance: ANAKINRA
     Indication: Kawasaki^s disease
     Dosage: 2-4 MG/KG/DAY (DOSE 1)
  3. ANAKINRA [Suspect]
     Active Substance: ANAKINRA
     Dosage: 5-7 MG/KG/DAY (DOSE 2)
  4. ANAKINRA [Suspect]
     Active Substance: ANAKINRA
     Dosage: 8-11 MG/KG/DAY (DOSE 3)

REACTIONS (1)
  - Off label use [Unknown]
